FAERS Safety Report 20277141 (Version 3)
Quarter: 2022Q2

REPORT INFORMATION
  Report Type: Report from Study
  Country: CA (occurrence: CA)
  Receive Date: 20220102
  Receipt Date: 20220401
  Transmission Date: 20220721
  Serious: Yes (Other)
  Sender: FDA-Public Use
  Company Number: CA-ABBVIE-21K-028-4217588-00

PATIENT
  Age: 35 Year
  Sex: Female

DRUGS (1)
  1. RINVOQ [Suspect]
     Active Substance: UPADACITINIB
     Indication: Psoriatic arthropathy
     Route: 048
     Dates: start: 20211216, end: 20220208

REACTIONS (12)
  - Herpes zoster [Recovered/Resolved]
  - Feeling cold [Unknown]
  - Tremor [Unknown]
  - Pruritus [Unknown]
  - Abdominal pain [Unknown]
  - Discomfort [Unknown]
  - Endometriosis [Unknown]
  - Colitis [Unknown]
  - Pelvic pain [Unknown]
  - Scab [Unknown]
  - Herpes zoster [Not Recovered/Not Resolved]
  - Fungal infection [Unknown]

NARRATIVE: CASE EVENT DATE: 20211201
